FAERS Safety Report 8216210-1 (Version None)
Quarter: 2012Q1

REPORT INFORMATION
  Report Type: 
  Country: None (occurrence: None)
  Receive Date: 20120316
  Receipt Date: 20120313
  Transmission Date: 20120608
  Serious: Yes (Hospitalization)
  Sender: FDA-Public Use
  Company Number: FR-GLAXOSMITHKLINE-B0784823A

PATIENT
  Sex: Female

DRUGS (9)
  1. PRAVASTATIN [Concomitant]
     Indication: THROMBOANGIITIS OBLITERANS
     Route: 065
  2. TRANSIPEG [Concomitant]
     Indication: CONSTIPATION
     Route: 065
  3. PAROXETINE HYDROCHLORIDE [Suspect]
     Indication: DEPRESSION
     Dosage: 10MG PER DAY
     Route: 048
     Dates: start: 20111220, end: 20120103
  4. IMOVANE [Suspect]
     Indication: INSOMNIA
     Dosage: 7.5MG PER DAY
     Route: 048
     Dates: start: 20101001, end: 20111226
  5. PANTOPRAZOLE [Concomitant]
     Indication: GASTRITIS
     Route: 065
  6. ASPIRIN [Concomitant]
     Indication: THROMBOANGIITIS OBLITERANS
     Route: 065
  7. VALSARTAN [Concomitant]
     Indication: HYPERTENSION
     Route: 065
  8. ACETAMINOPHEN [Concomitant]
     Indication: THROMBOANGIITIS OBLITERANS
     Route: 065
  9. DOMPERIDONE [Suspect]
     Indication: VOMITING
     Dosage: 20MG THREE TIMES PER DAY
     Route: 048
     Dates: start: 20111220, end: 20120103

REACTIONS (4)
  - FALL [None]
  - MALAISE [None]
  - PARKINSONISM [None]
  - RHABDOMYOLYSIS [None]
